FAERS Safety Report 18228868 (Version 1)
Quarter: 2020Q3

REPORT INFORMATION
  Report Type: Spontaneous
  Country: US (occurrence: US)
  Receive Date: 20200903
  Receipt Date: 20200903
  Transmission Date: 20201103
  Serious: No
  Sender: FDA-Public Use
  Company Number: US-JNJFOC-20200847961

PATIENT
  Age: 49 Year
  Sex: Male
  Weight: 113.5 kg

DRUGS (1)
  1. RISPERDAL [Suspect]
     Active Substance: RISPERIDONE
     Indication: PRODUCT USED FOR UNKNOWN INDICATION
     Route: 048
     Dates: start: 1999, end: 2009

REACTIONS (2)
  - Nipple swelling [Unknown]
  - Bilateral breast buds [Not Recovered/Not Resolved]

NARRATIVE: CASE EVENT DATE: 2002
